FAERS Safety Report 9184666 (Version 1)
Quarter: 2013Q1

REPORT INFORMATION
  Report Type: Spontaneous
  Country: BR (occurrence: BR)
  Receive Date: 20130324
  Receipt Date: 20130324
  Transmission Date: 20140127
  Serious: Yes (Other)
  Sender: FDA-Public Use
  Company Number: BR-PFIZER INC-2013088777

PATIENT
  Age: 66 Year
  Sex: Female
  Weight: 53 kg

DRUGS (5)
  1. XALATAN [Suspect]
     Indication: GLAUCOMA
     Dosage: 3 UG (ONE DROP IN EACH EYE), 1X/DAY
     Route: 047
     Dates: start: 20110207
  2. FRESH TEARS [Concomitant]
     Indication: EYE LUBRICATION THERAPY
     Dosage: 1 DROP IN EACH EYE 3X/DAY
     Dates: start: 2009
  3. PRESSAT [Concomitant]
     Indication: HYPERTENSION
     Dosage: 2.5 MG, 1X/DAY
     Dates: start: 2008
  4. SIMVASTATIN [Concomitant]
     Indication: BLOOD CHOLESTEROL ABNORMAL
     Dosage: ONE TABLET DAILY
     Dates: start: 2003
  5. TRAVATAN [Concomitant]

REACTIONS (3)
  - Macular hole [Unknown]
  - Foreign body in eye [Unknown]
  - Ocular discomfort [Unknown]
